FAERS Safety Report 8341120-9 (Version None)
Quarter: 2012Q2

REPORT INFORMATION
  Report Type: 
  Country: None (occurrence: None)
  Receive Date: 20120507
  Receipt Date: 20120427
  Transmission Date: 20120825
  Serious: Yes (Hospitalization)
  Sender: FDA-Public Use
  Company Number: FR-GLAXOSMITHKLINE-B0798538A

PATIENT
  Sex: Female

DRUGS (4)
  1. GEMZAR [Suspect]
     Indication: OVARIAN CANCER RECURRENT
     Dosage: 1670MG PER DAY
     Route: 042
     Dates: start: 20120215, end: 20120215
  2. ZOFRAN [Suspect]
     Indication: PROPHYLAXIS OF NAUSEA AND VOMITING
     Dosage: 8MG PER DAY
     Route: 042
     Dates: start: 20120215, end: 20120215
  3. ELOXATIN [Suspect]
     Indication: OVARIAN CANCER RECURRENT
     Dosage: 170MG PER DAY
     Route: 042
     Dates: start: 20120215, end: 20120215
  4. METHYLPREDNISOLONE [Suspect]
     Indication: PREMEDICATION
     Dosage: 60MG PER DAY
     Route: 042
     Dates: start: 20120215, end: 20120215

REACTIONS (1)
  - RESPIRATORY DISTRESS [None]
